FAERS Safety Report 25395902 (Version 1)
Quarter: 2025Q2

REPORT INFORMATION
  Report Type: Spontaneous
  Country: US (occurrence: None)
  Receive Date: 20250604
  Receipt Date: 20250604
  Transmission Date: 20250716
  Serious: No
  Sender: FDA-CTU
  Company Number: None

PATIENT
  Age: 32 Year
  Sex: Female
  Weight: 81.4 kg

DRUGS (1)
  1. SUBOXONE [Suspect]
     Active Substance: BUPRENORPHINE HYDROCHLORIDE\NALOXONE HYDROCHLORIDE
     Indication: Substance abuse
     Dosage: FREQUENCY : DAILY;?
     Route: 060
     Dates: start: 20210927

REACTIONS (2)
  - Withdrawal syndrome [None]
  - Maternal exposure during pregnancy [None]

NARRATIVE: CASE EVENT DATE: 20250523
